FAERS Safety Report 9994934 (Version 2)
Quarter: 2015Q1

REPORT INFORMATION
  Report Type: Spontaneous
  Country: US (occurrence: None)
  Receive Date: 20140214
  Receipt Date: 20150121
  Transmission Date: 20150721
  Serious: Yes (Other)
  Sender: FDA-Public Use
  Company Number: 1000051756

PATIENT
  Age: 68 Year
  Sex: Male

DRUGS (4)
  1. BYSTOLIC [Suspect]
     Active Substance: NEBIVOLOL HYDROCHLORIDE
     Indication: ATRIAL FIBRILLATION
     Route: 048
     Dates: start: 2009
  2. FLECAINIDE (FLECAINIDE) [Concomitant]
     Active Substance: FLECAINIDE
  3. HYTRIN (TERAZOSIN HYDROCHLORIDE) (TERAZOSIN HYDROCHLORIDE) [Concomitant]
  4. BYSTOLIC [Suspect]
     Active Substance: NEBIVOLOL HYDROCHLORIDE
     Indication: HYPERTENSION
     Route: 048
     Dates: start: 2009

REACTIONS (2)
  - Off label use [None]
  - Bradycardia [None]

NARRATIVE: CASE EVENT DATE: 2009
